FAERS Safety Report 18574324 (Version 1)
Quarter: 2020Q4

REPORT INFORMATION
  Report Type: Spontaneous
  Country: US (occurrence: US)
  Receive Date: 20201127
  Receipt Date: 20201127
  Transmission Date: 20210114
  Serious: Yes (Death)
  Sender: FDA-Public Use
  Company Number: None

PATIENT
  Age: 5 Decade
  Sex: Female

DRUGS (4)
  1. ANAKINRA [Suspect]
     Active Substance: ANAKINRA
     Indication: COVID-19
     Dates: start: 2020
  2. HYDROXYCHLOROQUINE [Suspect]
     Active Substance: HYDROXYCHLOROQUINE
     Indication: COVID-19
     Dates: start: 2020
  3. LOPINAVIR-RITONAVIR [Suspect]
     Active Substance: LOPINAVIR\RITONAVIR
     Indication: COVID-19
     Dosage: ?          OTHER DOSE:200/50 MG;?
     Dates: start: 2020
  4. TOCILIZUMAB. [Suspect]
     Active Substance: TOCILIZUMAB
     Indication: COVID-19
     Dates: start: 2020

REACTIONS (3)
  - Off label use [None]
  - Respiratory failure [None]
  - Drug ineffective [None]
